FAERS Safety Report 19867576 (Version 4)
Quarter: 2022Q2

REPORT INFORMATION
  Report Type: Spontaneous
  Country: US (occurrence: US)
  Receive Date: 20210922
  Receipt Date: 20220524
  Transmission Date: 20220721
  Serious: No
  Sender: FDA-Public Use
  Company Number: US-PFIZER INC-202101102797

PATIENT
  Age: 4 Year
  Sex: Male
  Weight: 15.42 kg

DRUGS (3)
  1. GENOTROPIN [Suspect]
     Active Substance: SOMATROPIN
     Indication: Foetal growth restriction
     Dosage: 0.7 MG, DAILY (0.6 MG ONE DAY AND 0.8 MG THE NEXT BY INJECTION DAILY)
  2. GENOTROPIN [Suspect]
     Active Substance: SOMATROPIN
     Indication: Adrenal insufficiency
     Dosage: 12 MG; 0.6 MG ONE DAY AND 0.8 MG THE NEXT BY INJECTION DAILY
  3. GENOTROPIN [Suspect]
     Active Substance: SOMATROPIN
     Dosage: 0.4 MG, DAILY

REACTIONS (3)
  - Off label use [Unknown]
  - Drug dose omission by device [Unknown]
  - Device physical property issue [Unknown]
